FAERS Safety Report 24776947 (Version 2)
Quarter: 2025Q3

REPORT INFORMATION
  Report Type: Spontaneous
  Country: EU (occurrence: EU)
  Receive Date: 20241226
  Receipt Date: 20250809
  Transmission Date: 20251021
  Serious: Yes (Other)
  Sender: ALEXION PHARMACEUTICALS
  Company Number: None

PATIENT
  Age: 41 Year
  Sex: Female

DRUGS (3)
  1. LYNPARZA [Suspect]
     Active Substance: OLAPARIB
     Indication: Ovarian neoplasm
     Dosage: 300 MG EVERY 12H
     Dates: start: 20231204, end: 20241128
  2. BEVACIZUMAB [Concomitant]
     Active Substance: BEVACIZUMAB
     Indication: Ovarian neoplasm
     Dates: start: 20230705, end: 20231226
  3. PACLITAXEL [Concomitant]
     Active Substance: PACLITAXEL
     Indication: Ovarian neoplasm
     Dates: start: 20230705, end: 20231024

REACTIONS (2)
  - Pulmonary thrombosis [Recovered/Resolved]
  - Peripheral vein thrombosis [Recovered/Resolved]

NARRATIVE: CASE EVENT DATE: 20241128
